FAERS Safety Report 5322073-4 (Version None)
Quarter: 2007Q2

REPORT INFORMATION
  Report Type: 
  Country: None (occurrence: None)
  Receive Date: 20070220
  Receipt Date: 20061115
  Transmission Date: 20071010
  Serious: Yes (Disabling)
  Sender: FDA-Public Use
  Company Number: WAES 0611USA04853

PATIENT
  Age: 38 Year
  Sex: Male

DRUGS (1)
  1. PROPECIA [Suspect]
     Indication: ALOPECIA
     Dosage: 1 MG/PO
     Route: 048
     Dates: start: 20040101, end: 20051101

REACTIONS (1)
  - ERECTILE DYSFUNCTION [None]
